FAERS Safety Report 4599844-5 (Version None)
Quarter: 2005Q1

REPORT INFORMATION
  Report Type: 
  Country: None (occurrence: None)
  Receive Date: 20050304
  Receipt Date: 20050304
  Transmission Date: 20050727
  Serious: Yes (Hospitalization)
  Sender: FDA-Public Use
  Company Number: None

PATIENT
  Age: 49 Year
  Sex: Male

DRUGS (14)
  1. COREG [Suspect]
     Indication: CARDIAC FAILURE CONGESTIVE
     Dates: start: 20050215, end: 20050217
  2. COREG [Suspect]
     Indication: HYPERTENSION
     Dates: start: 20050215, end: 20050217
  3. NORVASC [Concomitant]
  4. LISINOPRIL [Concomitant]
  5. M.V.I. [Concomitant]
  6. DAPSONE [Concomitant]
  7. XOPENEX [Concomitant]
  8. LASIX [Concomitant]
  9. RITONAVIR [Concomitant]
  10. ATAZANAVIR [Concomitant]
  11. FERROUS SULFATE TAB [Concomitant]
  12. LAMIVUDINE [Concomitant]
  13. ZIDOVUDINE [Concomitant]
  14. ZITHROMAX [Concomitant]

REACTIONS (3)
  - CHEST PAIN [None]
  - COUGH [None]
  - DYSPNOEA [None]
